FAERS Safety Report 19468392 (Version 3)
Quarter: 2021Q3

REPORT INFORMATION
  Report Type: Spontaneous
  Country: DE (occurrence: DE)
  Receive Date: 20210628
  Receipt Date: 20210921
  Transmission Date: 20211014
  Serious: Yes (Other)
  Sender: FDA-Public Use
  Company Number: DE-PFIZER INC-2021708335

PATIENT
  Age: 65 Year
  Sex: Female
  Weight: 179 kg

DRUGS (3)
  1. DOXORUBICIN HCL [Suspect]
     Active Substance: DOXORUBICIN HYDROCHLORIDE
     Indication: SOFT TISSUE SARCOMA
     Dosage: UNK UNK, CYCLIC (5 CYCLICAL)
     Route: 042
     Dates: start: 201903, end: 201906
  2. TAMOXIFEN [Concomitant]
     Active Substance: TAMOXIFEN
     Indication: BREAST CANCER METASTATIC
     Dosage: UNK, CYCLIC
     Dates: start: 201809
  3. BEVACIZUMAB. [Suspect]
     Active Substance: BEVACIZUMAB
     Indication: SOFT TISSUE SARCOMA
     Dosage: UNK UNK, CYCLIC (5 CYCLICAL)
     Route: 042
     Dates: start: 201903, end: 201906

REACTIONS (3)
  - Mucosal inflammation [Recovering/Resolving]
  - Neoplasm progression [Unknown]
  - Haematotoxicity [Recovering/Resolving]

NARRATIVE: CASE EVENT DATE: 2019
